FAERS Safety Report 25967620 (Version 3)
Quarter: 2025Q4

REPORT INFORMATION
  Report Type: Report from Study
  Country: CA (occurrence: CA)
  Receive Date: 20251028
  Receipt Date: 20251224
  Transmission Date: 20260117
  Serious: Yes (Other)
  Sender: ALEXION PHARMACEUTICALS
  Company Number: CA-AstraZeneca-CH-00978105A

PATIENT
  Age: 58 Year
  Sex: Female

DRUGS (9)
  1. SOLIRIS [Suspect]
     Active Substance: ECULIZUMAB
     Indication: Atypical haemolytic uraemic syndrome
     Dosage: LOADING DOSE: 900 MG 4 DOSES, QW
     Dates: start: 20250221, end: 20250313
  2. SOLIRIS [Suspect]
     Active Substance: ECULIZUMAB
     Dosage: 1200 MILLIGRAM
  3. SOLIRIS [Suspect]
     Active Substance: ECULIZUMAB
     Dosage: 1200 MILLIGRAM, Q2W
     Dates: start: 20250410
  4. SOLIRIS [Suspect]
     Active Substance: ECULIZUMAB
     Dosage: UNK
  5. LACOSAMIDE [Concomitant]
     Active Substance: LACOSAMIDE
     Dosage: 100 MILLIGRAM
     Route: 061
  6. PENICILLIN [Concomitant]
     Active Substance: PENICILLIN
     Dosage: 600 MILLIGRAM
     Route: 061
  7. CARVEDILOL [Concomitant]
     Active Substance: CARVEDILOL
     Dosage: 13 MILLIGRAM
     Route: 061
  8. SIMPONI [Concomitant]
     Active Substance: GOLIMUMAB
     Dosage: 50 MILLIGRAM
  9. LEVOTHYROXINE [Concomitant]
     Active Substance: LEVOTHYROXINE
     Dosage: 88 MICROGRAM, QD
     Route: 065

REACTIONS (13)
  - Nephrolithiasis [Recovered/Resolved]
  - Anaphylactic reaction [Unknown]
  - Heart rate decreased [Recovered/Resolved]
  - Flushing [Recovered/Resolved]
  - Blood pressure fluctuation [Recovered/Resolved]
  - Proteinuria [Recovered/Resolved]
  - Throat tightness [Recovered/Resolved]
  - Haematuria [Recovered/Resolved]
  - Infusion related reaction [Unknown]
  - Dyspnoea [Unknown]
  - Dysphagia [Unknown]
  - Dysphonia [Unknown]
  - Fishbane reaction [Unknown]

NARRATIVE: CASE EVENT DATE: 20251022
